FAERS Safety Report 7501418-0 (Version None)
Quarter: 2011Q2

REPORT INFORMATION
  Report Type: 
  Country: None (occurrence: None)
  Receive Date: 20110524
  Receipt Date: 20110517
  Transmission Date: 20111010
  Serious: Yes (Hospitalization, Other)
  Sender: FDA-Public Use
  Company Number: US-PFIZER INC-2005055117

PATIENT
  Sex: Female
  Weight: 58.957 kg

DRUGS (21)
  1. PREMARIN [Suspect]
     Dosage: 0.625 MG, UNK
     Dates: start: 19971218
  2. PROVERA [Suspect]
     Indication: HORMONE REPLACEMENT THERAPY
     Dosage: UNK
     Route: 048
     Dates: start: 19800101, end: 19900101
  3. PREMARIN [Suspect]
     Indication: HORMONE REPLACEMENT THERAPY
     Dosage: UNK
     Dates: start: 19800101, end: 19900101
  4. FEMHRT [Suspect]
     Indication: HORMONE REPLACEMENT THERAPY
     Dosage: UNK
     Route: 048
     Dates: start: 19800101, end: 19900101
  5. FEMHRT [Suspect]
     Dosage: 1MG/5MCG
     Route: 048
     Dates: start: 20001219
  6. PREMARIN [Suspect]
     Dosage: 0.625 MG, UNK
     Dates: start: 19990303, end: 19990928
  7. PREMPRO [Suspect]
     Dosage: 0.625/2.5 MG
     Route: 048
     Dates: start: 19971218, end: 20010806
  8. PREMARIN [Suspect]
     Dosage: UNK
     Dates: start: 19990101, end: 20010101
  9. PREMPRO [Suspect]
     Dosage: UNK
     Route: 048
     Dates: start: 19990101, end: 20010101
  10. PREMPRO [Suspect]
     Dosage: 0.625/5 MG
     Route: 048
     Dates: start: 20010122, end: 20011231
  11. PREMPRO [Suspect]
     Dosage: 5 MG, UNK
     Route: 048
     Dates: start: 20020313, end: 20030501
  12. BISOPROLOL FUMARATE AND HYDROCHLOROTHIAZIDE [Concomitant]
     Indication: CEREBROVASCULAR ACCIDENT
     Dosage: UNK
     Dates: start: 20020101
  13. FEMHRT [Suspect]
     Dosage: UNK
     Route: 065
     Dates: start: 19990101, end: 20010101
  14. PREMPRO [Suspect]
     Dosage: UNK
     Route: 048
     Dates: start: 19970201, end: 20020805
  15. PREMPRO [Suspect]
     Dosage: 0.625 MG
     Route: 048
     Dates: start: 20021119
  16. ESTRACE [Suspect]
     Dosage: UNK
     Route: 065
     Dates: start: 19990101, end: 20010101
  17. FEMHRT [Suspect]
     Dosage: 1MG/5MCG
     Route: 048
     Dates: start: 20000517, end: 20001219
  18. ESTRACE [Suspect]
     Indication: HORMONE REPLACEMENT THERAPY
     Dosage: UNK
     Route: 065
     Dates: start: 19800101, end: 19900101
  19. PROVERA [Suspect]
     Dosage: 2.5 MG, UNK
     Route: 048
     Dates: start: 19971218
  20. PROVERA [Suspect]
     Dosage: UNK
     Route: 048
     Dates: start: 19990101, end: 20010101
  21. PREMPRO [Suspect]
     Indication: HORMONE REPLACEMENT THERAPY
     Dosage: UNK
     Route: 048
     Dates: start: 19800101, end: 19900101

REACTIONS (2)
  - BREAST CANCER FEMALE [None]
  - CEREBROVASCULAR ACCIDENT [None]
